FAERS Safety Report 7110213-6 (Version None)
Quarter: 2010Q4

REPORT INFORMATION
  Report Type: 
  Country: None (occurrence: None)
  Receive Date: 20101112
  Receipt Date: 20101027
  Transmission Date: 20110411
  Serious: Yes (Hospitalization, Other)
  Sender: FDA-Public Use
  Company Number: 1-18177657

PATIENT
  Age: 68 Year
  Sex: Female
  Weight: 63.05 kg

DRUGS (8)
  1. QUININE SULFATE [Suspect]
     Indication: MUSCLE SPASMS
     Dosage: AS NEEDED, ORAL
     Route: 048
     Dates: start: 20030724
  2. QUININE SULFATE [Suspect]
     Indication: MUSCLE SPASMS
     Dosage: AS NEEDED, ORAL
     Route: 048
     Dates: start: 20020109
  3. ASPIRIN [Concomitant]
  4. CALCIUM [Concomitant]
  5. IRON SUPPLEMENT [Concomitant]
  6. MULTI-VITAMIN [Concomitant]
  7. POTASSIUM CHLORIDE [Concomitant]
  8. MAGNESIUM OXIDE [Concomitant]

REACTIONS (19)
  - ABDOMINAL PAIN [None]
  - ADVERSE EVENT [None]
  - ANGINA UNSTABLE [None]
  - ARTERIOSCLEROSIS [None]
  - ARTHRALGIA [None]
  - BLOOD CHOLESTEROL INCREASED [None]
  - BLOOD TRIGLYCERIDES INCREASED [None]
  - COLITIS [None]
  - CORONARY ARTERY DISEASE [None]
  - DRUG HYPERSENSITIVITY [None]
  - FOOT OPERATION [None]
  - GASTROENTERITIS [None]
  - HAEMATOMA [None]
  - HYPERTENSION [None]
  - MYOCARDIAL INFARCTION [None]
  - PAIN [None]
  - RAYNAUD'S PHENOMENON [None]
  - SCARLET FEVER [None]
  - THROMBOCYTOPENIA [None]
